FAERS Safety Report 4432123-5 (Version None)
Quarter: 2004Q3

REPORT INFORMATION
  Report Type: 
  Country: None (occurrence: None)
  Receive Date: 20040820
  Receipt Date: 20040805
  Transmission Date: 20050211
  Serious: Yes (Hospitalization)
  Sender: FDA-Public Use
  Company Number: 2004-0007340

PATIENT
  Age: 42 Year
  Sex: Male

DRUGS (4)
  1. VIREAD [Suspect]
     Indication: HIV INFECTION
  2. DIDANOSINE (DIDANOSINE) [Suspect]
     Indication: HIV INFECTION
  3. KALETRA [Concomitant]
  4. INDINAVIR [Concomitant]

REACTIONS (11)
  - ASPARTATE AMINOTRANSFERASE INCREASED [None]
  - BLOOD BILIRUBIN UNCONJUGATED INCREASED [None]
  - BLOOD LACTATE DEHYDROGENASE INCREASED [None]
  - CONDITION AGGRAVATED [None]
  - CRYOGLOBULINS PRESENT [None]
  - DRUG INEFFECTIVE [None]
  - DYSPNOEA EXERTIONAL [None]
  - ERYTHROPOIESIS ABNORMAL [None]
  - HAEMOLYTIC ANAEMIA [None]
  - HEPATITIS B VIRUS [None]
  - PALLOR [None]
